FAERS Safety Report 7283136-X (Version None)
Quarter: 2011Q1

REPORT INFORMATION
  Report Type: 
  Country: None (occurrence: None)
  Receive Date: 20110209
  Receipt Date: 20110131
  Transmission Date: 20110831
  Serious: Yes (Other)
  Sender: FDA-Public Use
  Company Number: JP-ROCHE-756616

PATIENT
  Age: 8 Year
  Sex: Male

DRUGS (1)
  1. TAMIFLU [Suspect]
     Indication: INFLUENZA
     Dosage: NOTE: DOSAGE IS UNCERTAIN,
     Route: 048
     Dates: start: 20110125, end: 20110126

REACTIONS (1)
  - ABNORMAL BEHAVIOUR [None]
